FAERS Safety Report 7213993-4 (Version None)
Quarter: 2011Q1

REPORT INFORMATION
  Report Type: 
  Country: None (occurrence: None)
  Receive Date: 20110106
  Receipt Date: 20101227
  Transmission Date: 20110831
  Serious: Yes (Hospitalization)
  Sender: FDA-Public Use
  Company Number: DE-AMGEN-DEUSP2011000015

PATIENT

DRUGS (8)
  1. ENBREL [Suspect]
  2. PANTOPRAZOLE [Concomitant]
  3. ENBREL [Suspect]
     Indication: POLYARTHRITIS
  4. ANTIDEPRESSANTS [Concomitant]
  5. ENBREL [Suspect]
     Indication: RHEUMATOID ARTHRITIS
     Dosage: 50 MG, WEEKLY
     Dates: start: 20100506, end: 20100101
  6. DIOVANE [Concomitant]
  7. VITAMIN D [Concomitant]
  8. AMITRIPTYLINE [Concomitant]
     Dosage: UNK

REACTIONS (1)
  - KNEE ARTHROPLASTY [None]
